FAERS Safety Report 18454419 (Version 1)
Quarter: 2020Q4

REPORT INFORMATION
  Report Type: Report from Study
  Country: BR (occurrence: BR)
  Receive Date: 20201102
  Receipt Date: 20201102
  Transmission Date: 20210114
  Serious: Yes (Other)
  Sender: FDA-Public Use
  Company Number: BR-TAKEDA-BR202015901

PATIENT

DRUGS (3)
  1. HEMO-8R [Suspect]
     Active Substance: ANTIHEMOPHILIC FACTOR, HUMAN RECOMBINANT
     Dosage: 1250  INTERNATIONAL UNIT
     Route: 042
     Dates: start: 20201009
  2. HEMO-8R [Suspect]
     Active Substance: ANTIHEMOPHILIC FACTOR, HUMAN RECOMBINANT
     Indication: FACTOR VIII DEFICIENCY
     Dosage: 750 INTERNATIONAL UNIT, 2X A WEEK
     Route: 042
     Dates: start: 20000719
  3. HEMO-8R [Suspect]
     Active Substance: ANTIHEMOPHILIC FACTOR, HUMAN RECOMBINANT
     Dosage: 1250  INTERNATIONAL UNIT
     Route: 042

REACTIONS (4)
  - Spontaneous haemorrhage [Recovered/Resolved]
  - Arthropathy [Unknown]
  - Haemarthrosis [Recovered/Resolved]
  - Gait disturbance [Recovering/Resolving]

NARRATIVE: CASE EVENT DATE: 20201009
